FAERS Safety Report 14406892 (Version 1)
Quarter: 2018Q1

REPORT INFORMATION
  Report Type: Report from Study
  Country: US (occurrence: US)
  Receive Date: 20180118
  Receipt Date: 20180118
  Transmission Date: 20180509
  Serious: Yes (Hospitalization)
  Sender: FDA-Public Use
  Company Number: US-JNJFOC-20171128031

PATIENT
  Age: 69 Year
  Sex: Male

DRUGS (2)
  1. CARDIZEM CD [Concomitant]
     Active Substance: DILTIAZEM HYDROCHLORIDE
  2. IMBRUVICA [Suspect]
     Active Substance: IBRUTINIB
     Indication: CHRONIC LYMPHOCYTIC LEUKAEMIA
     Route: 048
     Dates: start: 20170705

REACTIONS (7)
  - Oesophageal haemorrhage [Unknown]
  - Increased tendency to bruise [Recovered/Resolved]
  - Oesophageal rupture [Unknown]
  - Muscle spasms [Recovered/Resolved]
  - Impaired healing [Unknown]
  - Contusion [Not Recovered/Not Resolved]
  - Myalgia [Recovered/Resolved]

NARRATIVE: CASE EVENT DATE: 20171024
